FAERS Safety Report 6293141-8 (Version None)
Quarter: 2009Q3

REPORT INFORMATION
  Report Type: 
  Country: None (occurrence: None)
  Receive Date: 20090731
  Receipt Date: 20090723
  Transmission Date: 20100115
  Serious: Yes (Hospitalization)
  Sender: FDA-Public Use
  Company Number: IT-ABBOTT-09P-083-0587078-00

PATIENT
  Age: 48 Year
  Sex: Male

DRUGS (5)
  1. HUMIRA [Suspect]
     Indication: PSORIATIC ARTHROPATHY
     Route: 058
     Dates: start: 20090421, end: 20090616
  2. HUMIRA [Suspect]
     Indication: COLITIS ULCERATIVE
     Route: 058
     Dates: start: 20090324, end: 20090324
  3. HUMIRA [Suspect]
     Route: 058
     Dates: start: 20090407, end: 20090407
  4. PANTOPRAZOLE SODIUM [Concomitant]
     Indication: GASTRITIS
     Dosage: DAILY DOSE: 40 MILLIGRAMS
     Route: 048
     Dates: start: 20080101
  5. SALAZOPIRINA [Concomitant]
     Indication: COLITIS ULCERATIVE
     Dosage: FORM: 500 MILLIGRAMS
     Route: 048
     Dates: start: 20090101

REACTIONS (1)
  - DERMATITIS BULLOUS [None]
